FAERS Safety Report 4804200-8 (Version None)
Quarter: 2005Q4

REPORT INFORMATION
  Report Type: 
  Country: None (occurrence: None)
  Receive Date: 20051018
  Receipt Date: 20051018
  Transmission Date: 20060501
  Serious: Yes (Life-Threatening)
  Sender: FDA-Public Use
  Company Number: None

PATIENT
  Age: 55 Year
  Sex: Male
  Weight: 75.2971 kg

DRUGS (2)
  1. XANAX [Suspect]
  2. DIAZEPAM [Suspect]

REACTIONS (2)
  - CARDIAC DISORDER [None]
  - CORONARY ARTERY OCCLUSION [None]
